FAERS Safety Report 18761356 (Version 1)
Quarter: 2021Q1

REPORT INFORMATION
  Report Type: Spontaneous
  Country: US (occurrence: US)
  Receive Date: 20210116
  Receipt Date: 20210116
  Transmission Date: 20210419
  Serious: Yes (Hospitalization)
  Sender: FDA-Public Use
  Company Number: None

PATIENT
  Age: 75 Year
  Sex: Male
  Weight: 82 kg

DRUGS (2)
  1. CABOZANTINIB (CABOZANTINIB 20MG TAB) [Suspect]
     Active Substance: CABOZANTINIB
     Indication: DEEP VEIN THROMBOSIS
     Route: 048
     Dates: start: 20200715, end: 20201116
  2. CABOZANTINIB (CABOZANTINIB 20MG TAB) [Suspect]
     Active Substance: CABOZANTINIB
     Indication: PULMONARY EMBOLISM

REACTIONS (4)
  - Deep vein thrombosis [None]
  - Hypotension [None]
  - Hyperkalaemia [None]
  - Pulmonary embolism [None]

NARRATIVE: CASE EVENT DATE: 20201115
